FAERS Safety Report 9847257 (Version 1)
Quarter: 2014Q1

REPORT INFORMATION
  Report Type: Spontaneous
  Country: US (occurrence: US)
  Receive Date: 20140127
  Receipt Date: 20140127
  Transmission Date: 20141002
  Serious: Yes (Hospitalization)
  Sender: FDA-Public Use
  Company Number: US-DYAX CORP.-2013DX000088

PATIENT
  Age: 39 Year
  Sex: Female
  Weight: 85.35 kg

DRUGS (7)
  1. KALBITOR [Suspect]
     Indication: HEREDITARY ANGIOEDEMA
     Route: 058
     Dates: start: 20130416, end: 20130416
  2. KALBITOR [Suspect]
     Route: 058
     Dates: start: 20130417, end: 20130417
  3. KALBITOR [Suspect]
     Route: 058
     Dates: start: 20130418, end: 20130418
  4. KALBITOR [Suspect]
     Route: 058
     Dates: start: 20130419, end: 20130419
  5. KALBITOR [Suspect]
     Route: 058
  6. CINRYZE [Concomitant]
     Indication: HEREDITARY ANGIOEDEMA
  7. DANAZOL [Concomitant]
     Indication: PRODUCT USED FOR UNKNOWN INDICATION

REACTIONS (1)
  - Hereditary angioedema [Recovered/Resolved]
